FAERS Safety Report 4475598-8 (Version None)
Quarter: 2004Q3

REPORT INFORMATION
  Report Type: 
  Country: None (occurrence: None)
  Receive Date: 20040923
  Receipt Date: 20040712
  Transmission Date: 20050211
  Serious: No
  Sender: FDA-Public Use
  Company Number: USA040772458

PATIENT
  Age: 80 Year
  Sex: Female

DRUGS (5)
  1. FORTEO [Suspect]
     Indication: OSTEOPOROSIS
     Dates: start: 20040707
  2. ACIPHEX [Concomitant]
  3. MULTIVITAMIN [Concomitant]
  4. METAMUCIL-2 [Concomitant]
  5. CALCIUM CITRATE) [Concomitant]

REACTIONS (1)
  - MACULAR DEGENERATION [None]
